FAERS Safety Report 25731107 (Version 1)
Quarter: 2025Q3

REPORT INFORMATION
  Report Type: Spontaneous
  Country: CN (occurrence: CN)
  Receive Date: 20250827
  Receipt Date: 20250827
  Transmission Date: 20251021
  Serious: Yes (Other)
  Sender: FRESENIUS KABI
  Company Number: CN-FreseniusKabi-FK202511663

PATIENT
  Age: 85 Year
  Sex: Male

DRUGS (2)
  1. EGG PHOSPHOLIPIDS\GLYCERIN\MEDIUM-CHAIN TRIGLYCERIDES\SOYBEAN OIL [Suspect]
     Active Substance: EGG PHOSPHOLIPIDS\GLYCERIN\MEDIUM-CHAIN TRIGLYCERIDES\SOYBEAN OIL
     Indication: Intestinal obstruction
     Dosage: FOA: INJECTION
     Route: 041
     Dates: start: 20250806, end: 20250807
  2. Compound Amino Acid Injection (18AA-?) [Concomitant]
     Indication: Intestinal obstruction
     Dosage: FOA: INJECTION
     Route: 041
     Dates: start: 20250806, end: 20250807

REACTIONS (1)
  - Rash erythematous [Recovering/Resolving]

NARRATIVE: CASE EVENT DATE: 20250808
